FAERS Safety Report 6731125-3 (Version None)
Quarter: 2010Q2

REPORT INFORMATION
  Report Type: 
  Country: None (occurrence: None)
  Receive Date: 20100518
  Receipt Date: 20100412
  Transmission Date: 20101027
  Serious: No
  Sender: FDA-Public Use
  Company Number: A0855232A

PATIENT
  Age: 69 Year
  Sex: Male

DRUGS (4)
  1. COREG CR [Suspect]
     Dosage: 10MG PER DAY
     Route: 048
     Dates: start: 20100329
  2. CRESTOR [Concomitant]
  3. VOLTAREN [Concomitant]
  4. INSULIN [Concomitant]

REACTIONS (2)
  - DIARRHOEA [None]
  - DYSURIA [None]
